FAERS Safety Report 8533343-0 (Version None)
Quarter: 2012Q3

REPORT INFORMATION
  Report Type: 
  Country: None (occurrence: None)
  Receive Date: 20120724
  Receipt Date: 20120718
  Transmission Date: 20120928
  Serious: Yes (Other)
  Sender: FDA-Public Use
  Company Number: DE-ALLERGAN-1208197US

PATIENT
  Sex: Female

DRUGS (1)
  1. BOTULINUM TOXIN TYPE A [Suspect]
     Indication: PRODUCT USED FOR UNKNOWN INDICATION
     Dosage: UNK GTT, UNK
     Dates: start: 20110819, end: 20110819

REACTIONS (12)
  - MUSCLE SPASMS [None]
  - SPINAL MUSCULAR ATROPHY [None]
  - TEMPOROMANDIBULAR JOINT SYNDROME [None]
  - DIZZINESS [None]
  - HYPERHIDROSIS [None]
  - BLOOD PRESSURE FLUCTUATION [None]
  - DYSPHAGIA [None]
  - CENTRAL NERVOUS SYSTEM LESION [None]
  - JOINT DISLOCATION [None]
  - ARRHYTHMIA [None]
  - TOOTH INJURY [None]
  - OESOPHAGEAL SPASM [None]
